FAERS Safety Report 4393239-5 (Version None)
Quarter: 2004Q3

REPORT INFORMATION
  Report Type: 
  Country: None (occurrence: None)
  Receive Date: 20040701
  Receipt Date: 20040607
  Transmission Date: 20050211
  Serious: Yes (Hospitalization)
  Sender: FDA-Public Use
  Company Number: JP-JNJFOC-20040104299

PATIENT
  Age: 40 Year
  Sex: Female
  Weight: 44 kg

DRUGS (11)
  1. REMICADE [Suspect]
     Indication: RHEUMATOID ARTHRITIS
     Dosage: 3 MG/KG, 1 IN 1 AS NECESSARY, INTRAVENOUS DRIP
     Route: 041
     Dates: start: 20031208, end: 20031208
  2. REMICADE [Suspect]
     Indication: RHEUMATOID ARTHRITIS
     Dosage: 3 MG/KG, 1 IN 1 AS NECESSARY, INTRAVENOUS DRIP
     Route: 041
     Dates: start: 20031224, end: 20031224
  3. REMICADE [Suspect]
     Indication: RHEUMATOID ARTHRITIS
     Dosage: 3 MG/KG, 1 IN 1 AS NECESSARY, INTRAVENOUS DRIP
     Route: 041
     Dates: start: 20040121, end: 20040121
  4. RHEUMATREX [Concomitant]
  5. PREDNISOLONE [Concomitant]
  6. AZULIFIDINE EN (SULFASALAZINE) TABLETS [Concomitant]
  7. LOXONIN (LOXOPROFEN SODIUM) TABLETS [Concomitant]
  8. PANVITAN (PANVITAN) POWDER [Concomitant]
  9. SELBEX (TEPRENONE) CAPSULES [Concomitant]
  10. IBUPROFEN [Concomitant]
  11. POLARAMINE [Concomitant]

REACTIONS (12)
  - BLOOD CREATININE DECREASED [None]
  - BLOOD PRESSURE DECREASED [None]
  - DERMATITIS [None]
  - DYSPNOEA [None]
  - FLUSHING [None]
  - HAEMATOCRIT DECREASED [None]
  - HAEMOGLOBIN DECREASED [None]
  - HOARSENESS [None]
  - INFUSION RELATED REACTION [None]
  - NASAL CONGESTION [None]
  - PLATELET COUNT DECREASED [None]
  - RED BLOOD CELL COUNT DECREASED [None]
